FAERS Safety Report 4439612-8 (Version None)
Quarter: 2004Q3

REPORT INFORMATION
  Report Type: 
  Country: None (occurrence: None)
  Receive Date: 20040902
  Receipt Date: 20040823
  Transmission Date: 20050211
  Serious: Yes (Hospitalization, Other)
  Sender: FDA-Public Use
  Company Number: US-JNJFOC-20040202006

PATIENT
  Sex: Male
  Weight: 63.5 kg

DRUGS (3)
  1. LEVAQUIN [Suspect]
     Indication: URINARY TRACT INFECTION
  2. FLONASE [Concomitant]
  3. FLOMAX [Concomitant]
     Route: 049

REACTIONS (6)
  - ATRIAL FIBRILLATION [None]
  - CHEST PAIN [None]
  - CHOLELITHIASIS [None]
  - HEADACHE [None]
  - HEART VALVE INSUFFICIENCY [None]
  - MYOCARDIAL INFARCTION [None]
